FAERS Safety Report 13639685 (Version 1)
Quarter: 2017Q2

REPORT INFORMATION
  Report Type: Spontaneous
  Country: US (occurrence: US)
  Receive Date: 20170609
  Receipt Date: 20170609
  Transmission Date: 20170830
  Serious: No
  Sender: FDA-Public Use
  Company Number: US-ROCHE-1139573

PATIENT
  Sex: Female

DRUGS (2)
  1. KLONOPIN [Suspect]
     Active Substance: CLONAZEPAM
     Indication: ANXIETY
     Route: 048
     Dates: start: 2007
  2. KLONOPIN [Suspect]
     Active Substance: CLONAZEPAM
     Dosage: 1 MG IN THE AM AND 0.5 MG IN PM
     Route: 065

REACTIONS (3)
  - Sensory disturbance [Unknown]
  - Withdrawal syndrome [Unknown]
  - Hyperhidrosis [Unknown]
